FAERS Safety Report 21120148 (Version 2)
Quarter: 2022Q4

REPORT INFORMATION
  Report Type: Report from Study
  Country: US (occurrence: US)
  Receive Date: 20220722
  Receipt Date: 20221025
  Transmission Date: 20230112
  Serious: Yes (Death, Other)
  Sender: FDA-Public Use
  Company Number: US-ABBVIE-22K-163-4448351-00

PATIENT
  Sex: Male

DRUGS (1)
  1. IMBRUVICA [Suspect]
     Active Substance: IBRUTINIB
     Indication: Mantle cell lymphoma
     Route: 048
     Dates: start: 202201, end: 202207

REACTIONS (4)
  - Death [Fatal]
  - Neoplasm [Unknown]
  - Brain neoplasm malignant [Unknown]
  - Neurological symptom [Unknown]

NARRATIVE: CASE EVENT DATE: 20220101
